FAERS Safety Report 8111312-2 (Version None)
Quarter: 2012Q1

REPORT INFORMATION
  Report Type: 
  Country: None (occurrence: None)
  Receive Date: 20120203
  Receipt Date: 20110825
  Transmission Date: 20120608
  Serious: No
  Sender: FDA-Public Use
  Company Number: US-GLAXOSMITHKLINE-A0942298A

PATIENT
  Sex: Female

DRUGS (4)
  1. RITALIN [Concomitant]
     Dosage: 10MG THREE TIMES PER DAY
  2. LAMICTAL [Suspect]
     Indication: DEPRESSION
     Dosage: 200MG TWICE PER DAY
     Route: 048
     Dates: end: 20110823
  3. DEPLIN [Concomitant]
  4. MELATONIN [Concomitant]
     Dosage: 3MG AT NIGHT

REACTIONS (6)
  - REBOUND EFFECT [None]
  - PARAESTHESIA [None]
  - HYPOAESTHESIA [None]
  - HEADACHE [None]
  - HYPOTENSION [None]
  - DIZZINESS [None]
